FAERS Safety Report 14145591 (Version 1)
Quarter: 2017Q4

REPORT INFORMATION
  Report Type: Spontaneous
  Country: US (occurrence: US)
  Receive Date: 20171030
  Receipt Date: 20171030
  Transmission Date: 20180321
  Serious: Yes (Other)
  Sender: FDA-Public Use
  Company Number: None

PATIENT
  Age: 12 Month
  Sex: Male

DRUGS (1)
  1. TOPIRAMATE. [Suspect]
     Active Substance: TOPIRAMATE
     Indication: EPILEPSY
     Route: 048
     Dates: start: 20171009, end: 20171012

REACTIONS (4)
  - Abnormal behaviour [None]
  - Eye irritation [None]
  - Ocular hyperaemia [None]
  - Condition aggravated [None]

NARRATIVE: CASE EVENT DATE: 20171009
